FAERS Safety Report 5762985-0 (Version None)
Quarter: 2008Q2

REPORT INFORMATION
  Report Type: 
  Country: None (occurrence: None)
  Receive Date: 20080609
  Receipt Date: 20080530
  Transmission Date: 20081010
  Serious: Yes (Life-Threatening, Hospitalization)
  Sender: FDA-Public Use
  Company Number: US-SANOFI-SYNTHELABO-F01200800668

PATIENT

DRUGS (4)
  1. LEUCOVORIN CALCIUM [Suspect]
     Route: 042
  2. FLUOROURACIL [Suspect]
     Dosage: 400 MG/M2 IV BOLUS AND 2400 MG/M2 IV CONTINUOUS INFUSION FOR 46 HOURS, Q2W
     Route: 042
  3. OXALIPLATIN [Suspect]
     Indication: COLON CANCER STAGE III
     Route: 042
  4. BEVACIZUMAB [Suspect]
     Route: 042

REACTIONS (6)
  - HYPERBILIRUBINAEMIA [None]
  - LEFT VENTRICULAR DYSFUNCTION [None]
  - NODAL ARRHYTHMIA [None]
  - PLATELET COUNT DECREASED [None]
  - RENAL FAILURE [None]
  - WHITE BLOOD CELL COUNT DECREASED [None]
